FAERS Safety Report 9355044 (Version 1)
Quarter: 2013Q2

REPORT INFORMATION
  Report Type: Spontaneous
  Country: US (occurrence: US)
  Receive Date: 20130619
  Receipt Date: 20130619
  Transmission Date: 20140414
  Serious: No
  Sender: FDA-Public Use
  Company Number: US-TEVA-410909USA

PATIENT
  Age: 78 Year
  Sex: Male
  Weight: 67 kg

DRUGS (11)
  1. ALLOPURINOL [Concomitant]
     Dosage: 300 MILLIGRAM DAILY;
     Route: 048
  2. SIMVASTATIN [Concomitant]
     Indication: BLOOD CHOLESTEROL INCREASED
     Dosage: 40 MILLIGRAM DAILY;
     Route: 048
  3. FLOMAX [Concomitant]
     Dosage: .4 MILLIGRAM DAILY;
     Route: 048
  4. METOPROLOL ER [Concomitant]
     Indication: HYPERTENSION
     Dosage: 50 MILLIGRAM DAILY;
     Route: 048
  5. ASPIRIN [Concomitant]
     Dosage: 81 MILLIGRAM DAILY;
     Route: 048
  6. TRIAMTERENE AND HYDROCHLOROTHIAZID [Concomitant]
     Indication: HYPERTENSION
     Dosage: 37.5/25 MG
     Route: 048
  7. ALTACE [Concomitant]
     Indication: HYPERTENSION
     Dosage: 2.5 MILLIGRAM DAILY;
     Route: 048
  8. NEXIUM [Concomitant]
     Route: 048
  9. METAMUCIL [Concomitant]
     Route: 048
  10. TREANDA [Suspect]
     Indication: NON-HODGKIN^S LYMPHOMA
  11. RITUXAN [Suspect]

REACTIONS (2)
  - Swollen tongue [Unknown]
  - Mucosal inflammation [Unknown]
